FAERS Safety Report 12233974 (Version 4)
Quarter: 2016Q2

REPORT INFORMATION
  Report Type: Report from Study
  Country: US (occurrence: US)
  Receive Date: 20160404
  Receipt Date: 20160613
  Transmission Date: 20160815
  Serious: Yes (Other)
  Sender: FDA-Public Use
  Company Number: US-MDT-ADR-2016-00616

PATIENT
  Age: 49 Year
  Sex: Male

DRUGS (3)
  1. BUPIVACAINE. [Suspect]
     Active Substance: BUPIVACAINE
     Dosage: 13.474MG/DAY
     Route: 037
     Dates: start: 20151223
  2. COMPOUNDED BACLOFEN [Suspect]
     Active Substance: BACLOFEN
     Dosage: 359.31MCG/DAY
     Route: 037
     Dates: start: 20151223
  3. FENTANYL. [Suspect]
     Active Substance: FENTANYL
     Dosage: 359.31MCG/DAY
     Route: 037
     Dates: start: 20151223

REACTIONS (4)
  - Pain [Recovered/Resolved with Sequelae]
  - Drug withdrawal syndrome [Recovered/Resolved with Sequelae]
  - Tremor [Recovered/Resolved with Sequelae]
  - Feeling of body temperature change [Recovered/Resolved with Sequelae]

NARRATIVE: CASE EVENT DATE: 20160329
